FAERS Safety Report 8612246 (Version 2)
Quarter: 2013Q1

REPORT INFORMATION
  Report Type: Spontaneous
  Country: US (occurrence: US)
  Receive Date: 20120613
  Receipt Date: 20130115
  Transmission Date: 20140127
  Serious: Yes (Hospitalization, Other)
  Sender: FDA-Public Use
  Company Number: US-BAYER-2012-057437

PATIENT
  Age: 17 Year
  Sex: Female
  Weight: 121.54 kg

DRUGS (8)
  1. YASMIN [Suspect]
     Indication: MENSTRUAL CYCLE MANAGEMENT
     Dosage: UNK
  2. YASMIN [Suspect]
     Indication: CONTRACEPTION
  3. ADDERALL [Concomitant]
     Dosage: 20 MG, DAILY
     Route: 048
  4. CELEXA [Concomitant]
     Dosage: 20 MG, DAILY
     Route: 048
  5. NAPROXEN [Concomitant]
     Dosage: 1 TABLET AS NEEDED
  6. ZANAFLEX [Concomitant]
     Dosage: 1 AS NEEDED
  7. TEGRETOL [Concomitant]
     Dosage: UNK
  8. WELLBUTRIN [Concomitant]
     Dosage: UNK

REACTIONS (3)
  - Deep vein thrombosis [None]
  - Thrombosis [None]
  - Jugular vein thrombosis [None]
